FAERS Safety Report 15863950 (Version 2)
Quarter: 2019Q2

REPORT INFORMATION
  Report Type: Spontaneous
  Country: FR (occurrence: FR)
  Receive Date: 20190124
  Receipt Date: 20190528
  Transmission Date: 20190711
  Serious: Yes (Hospitalization)
  Sender: FDA-Public Use
  Company Number: FR-MYLANLABS-2019M1005671

PATIENT
  Age: 32 Year
  Sex: Female

DRUGS (8)
  1. CISPLATIN. [Suspect]
     Active Substance: CISPLATIN
     Indication: ADRENAL GLAND CANCER
     Dosage: UNK
     Route: 041
     Dates: start: 20180621, end: 20180623
  2. PIPERACILLIN AND TAZOBACTAM [Suspect]
     Active Substance: PIPERACILLIN SODIUM\TAZOBACTAM SODIUM
     Indication: BACTERIAL INFECTION
     Dosage: 12 GRAM, QD
     Route: 041
     Dates: start: 20180619, end: 20180625
  3. NIVESTIM [Concomitant]
     Active Substance: FILGRASTIM
     Dosage: 48 KILO-INTERNATIONAL UNIT, QD
     Route: 058
     Dates: start: 20180625, end: 20180628
  4. BACTRIM [Suspect]
     Active Substance: SULFAMETHOXAZOLE\TRIMETHOPRIM
     Indication: PNEUMOCYSTIS JIROVECII PNEUMONIA
     Dosage: 6400 MILLIGRAM, QD
     Route: 048
     Dates: start: 20180618, end: 20180625
  5. EMEND [Suspect]
     Active Substance: APREPITANT
     Indication: PROPHYLAXIS OF NAUSEA AND VOMITING
     Dosage: 80 MILLIGRAM, QD
     Route: 048
     Dates: start: 20180621, end: 20180627
  6. LYSODREN [Concomitant]
     Active Substance: MITOTANE
     Indication: CUSHING^S SYNDROME
     Dosage: 3000 MILLIGRAM, QD
     Route: 048
     Dates: start: 20180621, end: 20180625
  7. METOPIRONE [Concomitant]
     Active Substance: METYRAPONE
     Indication: CUSHING^S SYNDROME
     Dosage: 750 MILLIGRAM, QD
     Dates: start: 20180619, end: 20180703
  8. ROVAMYCINE                         /00074401/ [Suspect]
     Active Substance: SPIRAMYCIN
     Indication: PNEUMOCYSTIS JIROVECII PNEUMONIA
     Dosage: 1.5 KILO-INTERNATIONAL UNIT, QD
     Route: 041
     Dates: start: 20180618, end: 20180625

REACTIONS (1)
  - Hepatocellular injury [Recovered/Resolved]

NARRATIVE: CASE EVENT DATE: 20180623
